FAERS Safety Report 18954739 (Version 1)
Quarter: 2021Q1

REPORT INFORMATION
  Report Type: Spontaneous
  Country: DZ (occurrence: DZ)
  Receive Date: 20210301
  Receipt Date: 20210301
  Transmission Date: 20210420
  Serious: Yes (Death, Hospitalization)
  Sender: FDA-Public Use
  Company Number: DZ-BAYER-2021-078196

PATIENT
  Age: 65 Year
  Sex: Female

DRUGS (2)
  1. STIVARGA [Suspect]
     Active Substance: REGORAFENIB
     Indication: COLON CANCER METASTATIC
     Dosage: UNK
  2. STIVARGA [Suspect]
     Active Substance: REGORAFENIB
     Indication: COLON CANCER METASTATIC
     Dosage: DAILY DOSE 80 MG

REACTIONS (9)
  - Haemoglobin decreased [None]
  - Prothrombin time prolonged [None]
  - Blood albumin abnormal [None]
  - Alanine aminotransferase increased [None]
  - Blood bilirubin increased [None]
  - Dyspnoea exertional [Fatal]
  - Cell death [None]
  - Jaundice [None]
  - Haematemesis [None]

NARRATIVE: CASE EVENT DATE: 20210210
